FAERS Safety Report 9576722 (Version 1)
Quarter: 2013Q4

REPORT INFORMATION
  Report Type: Spontaneous
  Country: US (occurrence: US)
  Receive Date: 20131001
  Receipt Date: 20131001
  Transmission Date: 20140711
  Serious: No
  Sender: FDA-Public Use
  Company Number: US-AMGEN-USASP2013004291

PATIENT
  Age: 52 Year
  Sex: Female

DRUGS (3)
  1. ENBREL [Suspect]
     Indication: RHEUMATOID ARTHRITIS
     Dosage: 50 MG, QWK
     Dates: start: 20121115
  2. METHOTREXATE [Concomitant]
     Dosage: 10 TABLETS (2.5 MG EACH) ONCE A WEEK
     Route: 048
     Dates: start: 201202
  3. PLAQUENIL                          /00072602/ [Concomitant]
     Dosage: 2 TABLETS (200 MG EACH) ONCE A DAY
     Dates: start: 201206

REACTIONS (1)
  - Arthralgia [Not Recovered/Not Resolved]
